FAERS Safety Report 6987556-X (Version None)
Quarter: 2010Q3

REPORT INFORMATION
  Report Type: 
  Country: None (occurrence: None)
  Receive Date: 20100916
  Receipt Date: 20100908
  Transmission Date: 20110219
  Serious: Yes (Other)
  Sender: FDA-Public Use
  Company Number: US-PFIZER INC-2010114401

PATIENT
  Sex: Female

DRUGS (2)
  1. CHANTIX [Suspect]
     Indication: SMOKING CESSATION THERAPY
     Dosage: 0.5 MG, 1X/DAY
     Route: 048
     Dates: start: 20100801
  2. IBUPROFEN [Concomitant]
     Indication: PAIN
     Dosage: UNK

REACTIONS (3)
  - ABNORMAL BEHAVIOUR [None]
  - HOMICIDAL IDEATION [None]
  - SUICIDAL IDEATION [None]
